FAERS Safety Report 4831257-0 (Version None)
Quarter: 2005Q4

REPORT INFORMATION
  Report Type: 
  Country: None (occurrence: None)
  Receive Date: 20051116
  Receipt Date: 20051110
  Transmission Date: 20060501
  Serious: Yes (Hospitalization)
  Sender: FDA-Public Use
  Company Number: S05-USA-04568-01

PATIENT
  Age: 67 Year
  Sex: Female
  Weight: 52.1637 kg

DRUGS (5)
  1. THEOPHYLLINE [Suspect]
     Indication: ASTHMA
     Dosage: 200 MG TID PO
     Route: 048
     Dates: start: 20050201, end: 20050829
  2. THEOPHYLLINE [Suspect]
     Indication: ASTHMA
     Dosage: 200 MG TID PO
     Route: 048
     Dates: start: 20050830, end: 20050801
  3. OXYCODONE [Concomitant]
  4. DITROPAN [Concomitant]
  5. SEPTRA [Concomitant]

REACTIONS (10)
  - ANTASTHMATIC DRUG LEVEL ABOVE THERAPEUTIC [None]
  - BLOOD PRESSURE DECREASED [None]
  - BLOOD PRESSURE SYSTOLIC INCREASED [None]
  - DIARRHOEA [None]
  - DRUG TOXICITY [None]
  - FAECES DISCOLOURED [None]
  - LABILE BLOOD PRESSURE [None]
  - ULCER [None]
  - URINARY TRACT INFECTION [None]
  - VOMITING [None]
